FAERS Safety Report 6952011-X (Version None)
Quarter: 2010Q3

REPORT INFORMATION
  Report Type: 
  Country: None (occurrence: None)
  Receive Date: 20100829
  Receipt Date: 20100419
  Transmission Date: 20110219
  Serious: No
  Sender: FDA-Public Use
  Company Number: US-ABBOTT-10P-163-0640437-00

PATIENT
  Sex: Female
  Weight: 86.26 kg

DRUGS (5)
  1. NIASPAN [Suspect]
     Indication: BLOOD CHOLESTEROL INCREASED
     Dates: start: 20100201, end: 20100301
  2. NIASPAN [Suspect]
     Dates: start: 20100301
  3. AMITRIPTYLINE HCL [Concomitant]
     Indication: MIGRAINE
  4. ATENOLOL [Concomitant]
     Indication: VENTRICULAR EXTRASYSTOLES
  5. TOMOPTIC [Concomitant]
     Indication: GLAUCOMA

REACTIONS (3)
  - FLUSHING [None]
  - PRURITUS [None]
  - RASH [None]
